FAERS Safety Report 8452960-X (Version None)
Quarter: 2012Q2

REPORT INFORMATION
  Report Type: 
  Country: None (occurrence: None)
  Receive Date: 20120620
  Receipt Date: 20120611
  Transmission Date: 20120825
  Serious: Yes (Hospitalization)
  Sender: FDA-Public Use
  Company Number: US-ASTRAZENECA-2012SE38840

PATIENT
  Age: 49 Year
  Sex: Male
  Weight: 70.3 kg

DRUGS (21)
  1. DOSE PACK [Suspect]
     Indication: PRURITUS GENERALISED
     Route: 065
  2. HYDROXYZINE EMBONATE [Concomitant]
     Indication: SLEEP DISORDER
  3. MECLIZINE HYDROCHLORIDE [Concomitant]
     Indication: VERTIGO
  4. ENTOCORT EC [Suspect]
     Route: 048
  5. HYDROXYZINE EMBONATE [Concomitant]
     Indication: DEPRESSION
  6. OMEPRAZOLE [Concomitant]
     Indication: GASTROOESOPHAGEAL REFLUX DISEASE
  7. ALPRAZOLAM [Concomitant]
     Indication: ANXIETY
  8. ALPRAZOLAM [Concomitant]
     Indication: PSYCHOTIC DISORDER
  9. CELECOXIB [Concomitant]
     Indication: ARTHRITIS
  10. HUMIRA [Suspect]
     Indication: CROHN'S DISEASE
     Dosage: 40 MG/0.8 ML PEN (40 MILLIGRAM)
     Route: 065
     Dates: start: 20120312
  11. MIRTAZAPINE [Concomitant]
     Indication: SLEEP DISORDER
  12. CEFIXIME [Concomitant]
     Indication: PAIN
  13. MORPHINE [Concomitant]
     Indication: ARTHRALGIA
  14. CELECOXIB [Concomitant]
     Indication: ARTHRALGIA
  15. ENTOCORT EC [Suspect]
     Route: 048
  16. QUETIAPINE FUMARATE [Concomitant]
     Indication: SLEEP DISORDER
  17. PRE HUMIRA PEN [Concomitant]
  18. HYDROMORPHONE HYDROCHLORIDE [Concomitant]
     Indication: ARTHRALGIA
  19. TERAZOSIN HCL [Concomitant]
     Indication: SLEEP DISORDER
  20. LEVOTHYROXINE SODIUM [Concomitant]
     Indication: HYPOTHYROIDISM
  21. DESVENLAFAXINE SUCCINATE [Concomitant]
     Indication: DEPRESSION

REACTIONS (13)
  - HYPERTENSION [None]
  - RASH [None]
  - DIZZINESS [None]
  - TREMOR [None]
  - SMALL INTESTINE ULCER [None]
  - GASTROINTESTINAL HAEMORRHAGE [None]
  - DYSSTASIA [None]
  - RASH PRURITIC [None]
  - RASH PAPULAR [None]
  - FEELING ABNORMAL [None]
  - CROHN'S DISEASE [None]
  - FALL [None]
  - HAEMOGLOBIN DECREASED [None]
